FAERS Safety Report 4680861-1 (Version None)
Quarter: 2005Q2

REPORT INFORMATION
  Report Type: 
  Country: None (occurrence: None)
  Receive Date: 20050601
  Receipt Date: 20050601
  Transmission Date: 20051028
  Serious: No
  Sender: FDA-Public Use
  Company Number: None

PATIENT
  Sex: Female

DRUGS (1)
  1. TERBUTALINE SULFATE [Suspect]
     Indication: PREMATURE LABOUR
     Dosage: 0.25 MG
     Dates: start: 20050526

REACTIONS (4)
  - BLOOD PRESSURE DECREASED [None]
  - FEELING HOT [None]
  - HYPERHIDROSIS [None]
  - SYNCOPE VASOVAGAL [None]
